FAERS Safety Report 8359723-4 (Version None)
Quarter: 2012Q2

REPORT INFORMATION
  Report Type: 
  Country: None (occurrence: None)
  Receive Date: 20120515
  Receipt Date: 20120503
  Transmission Date: 20120825
  Serious: Yes (Hospitalization, Other)
  Sender: FDA-Public Use
  Company Number: US-JNJFOC-20120504567

PATIENT
  Sex: Female
  Weight: 55.79 kg

DRUGS (5)
  1. DURAGESIC-100 [Suspect]
     Indication: PAIN
     Route: 062
     Dates: end: 20100101
  2. FENTANYL-100 [Suspect]
     Indication: PAIN
     Route: 062
     Dates: start: 20050101, end: 20050101
  3. FENTANYL-100 [Suspect]
     Route: 062
     Dates: start: 20050101, end: 20080101
  4. DURAGESIC-100 [Suspect]
     Route: 062
     Dates: start: 20100101
  5. IMITREX [Concomitant]
     Indication: HEADACHE
     Route: 048
     Dates: start: 20050101

REACTIONS (14)
  - SWELLING [None]
  - HYPERCHLORHYDRIA [None]
  - APPLICATION SITE REACTION [None]
  - GASTROINTESTINAL PERFORATION [None]
  - APPLICATION SITE EROSION [None]
  - BLOOD PRESSURE DECREASED [None]
  - WEIGHT INCREASED [None]
  - GASTRIC PERFORATION [None]
  - HYPERTENSION [None]
  - WITHDRAWAL SYNDROME [None]
  - PAIN [None]
  - BREAKTHROUGH PAIN [None]
  - DERMATITIS CONTACT [None]
  - PRODUCT PACKAGING QUANTITY ISSUE [None]
